FAERS Safety Report 7589329-6 (Version None)
Quarter: 2011Q2

REPORT INFORMATION
  Report Type: 
  Country: None (occurrence: None)
  Receive Date: 20110627
  Receipt Date: 20110616
  Transmission Date: 20111010
  Serious: Yes (Hospitalization)
  Sender: FDA-Public Use
  Company Number: JPI-P-015501

PATIENT
  Age: 57 Year
  Sex: Female

DRUGS (4)
  1. XYREM [Suspect]
     Indication: FIBROMYALGIA
     Dosage: 7 GM (3.5 GM, 2 IN 1 D), ORAL; 8 GM (4 GM, 2 IN 1 D), ORAL
     Route: 048
     Dates: start: 20060217
  2. XYREM [Suspect]
     Indication: INSOMNIA
     Dosage: 7 GM (3.5 GM, 2 IN 1 D), ORAL; 8 GM (4 GM, 2 IN 1 D), ORAL
     Route: 048
     Dates: start: 20060217
  3. XYREM [Suspect]
     Indication: FIBROMYALGIA
     Dosage: 7 GM (3.5 GM, 2 IN 1 D), ORAL; 8 GM (4 GM, 2 IN 1 D), ORAL
     Route: 048
     Dates: start: 20071009
  4. XYREM [Suspect]
     Indication: INSOMNIA
     Dosage: 7 GM (3.5 GM, 2 IN 1 D), ORAL; 8 GM (4 GM, 2 IN 1 D), ORAL
     Route: 048
     Dates: start: 20071009

REACTIONS (6)
  - HALLUCINATION, AUDITORY [None]
  - PSYCHOTIC DISORDER [None]
  - CONDITION AGGRAVATED [None]
  - SCHIZOPHRENIA [None]
  - FIBROMYALGIA [None]
  - TOOTHACHE [None]
